FAERS Safety Report 4426091-X (Version None)
Quarter: 2004Q3

REPORT INFORMATION
  Report Type: 
  Country: None (occurrence: None)
  Receive Date: 20040811
  Receipt Date: 20040723
  Transmission Date: 20050211
  Serious: No
  Sender: FDA-Public Use
  Company Number: A01200303851

PATIENT
  Age: 40 Year
  Sex: Female

DRUGS (5)
  1. XATRAL - (ALFUZOSIN) - TABLET PR - 10 MG [Suspect]
     Indication: CYSTITIS
     Dosage: 10 MG OD  ORAL
     Route: 048
     Dates: start: 20030703, end: 20030727
  2. XATRAL - (ALFUZOSIN) - TABLET PR - 10 MG [Suspect]
     Indication: DISEASE RECURRENCE
     Dosage: 10 MG OD  ORAL
     Route: 048
     Dates: start: 20030703, end: 20030727
  3. VIBRATAB (DOXYCYCLINE HYDROCHLORIDE) [Concomitant]
  4. URFADYN (NIFURTOINOL) [Concomitant]
  5. VITAMIN B6 [Concomitant]

REACTIONS (3)
  - ABORTION SPONTANEOUS [None]
  - DRUG EXPOSURE DURING PREGNANCY [None]
  - PREGNANCY [None]
